FAERS Safety Report 23596953 (Version 5)
Quarter: 2025Q1

REPORT INFORMATION
  Report Type: Spontaneous
  Country: US (occurrence: US)
  Receive Date: 20240305
  Receipt Date: 20250120
  Transmission Date: 20250408
  Serious: Yes (Hospitalization, Other)
  Sender: SANOFI AVENTIS
  Company Number: US-SA-SAC20240305000162

PATIENT
  Age: 62 Year
  Sex: Female
  Weight: 58.594 kg

DRUGS (22)
  1. DUPIXENT [Suspect]
     Active Substance: DUPILUMAB
     Indication: Plasma cell myeloma
     Dosage: 300 MG, QOW
     Route: 058
     Dates: start: 20220518, end: 202311
  2. DUPIXENT [Suspect]
     Active Substance: DUPILUMAB
     Indication: Psoriatic arthropathy
  3. LENALIDOMIDE [Suspect]
     Active Substance: LENALIDOMIDE
  4. HUMIRA [Concomitant]
     Active Substance: ADALIMUMAB
  5. SYNTHROID [Concomitant]
     Active Substance: LEVOTHYROXINE SODIUM
  6. PREGABALIN [Concomitant]
     Active Substance: PREGABALIN
  7. METOPROLOL TARTRATE [Concomitant]
     Active Substance: METOPROLOL TARTRATE
  8. PAXLOVID [Concomitant]
     Active Substance: NIRMATRELVIR\RITONAVIR
  9. CLOBETASOL PROPIONATE [Concomitant]
     Active Substance: CLOBETASOL PROPIONATE
  10. COVID-19 vaccine [Concomitant]
  11. DICLOFENAC SODIUM [Concomitant]
     Active Substance: DICLOFENAC SODIUM
  12. HYDROXYCHLOROQUINE SULFATE [Concomitant]
     Active Substance: HYDROXYCHLOROQUINE SULFATE
  13. OPZELURA [Concomitant]
     Active Substance: RUXOLITINIB PHOSPHATE
  14. IBUPROFEN AND FAMOTIDINE [Concomitant]
     Active Substance: FAMOTIDINE\IBUPROFEN
  15. AMOXICILLIN [Concomitant]
     Active Substance: AMOXICILLIN
  16. HYDROCORTISONE [Concomitant]
     Active Substance: HYDROCORTISONE
  17. OZEMPIC [Concomitant]
     Active Substance: SEMAGLUTIDE
  18. VITAMIN B COMPLEX [ERGOCALCIFEROL;NICOTINAMIDE;PYRIDOXINE HYDROCHLORID [Concomitant]
  19. VITAMIN D2 [Concomitant]
     Active Substance: ERGOCALCIFEROL
  20. NURTEC ODT [Concomitant]
     Active Substance: RIMEGEPANT SULFATE
  21. ASPIRIN [Concomitant]
     Active Substance: ASPIRIN
  22. LEVOFLOXACIN [Concomitant]
     Active Substance: LEVOFLOXACIN

REACTIONS (12)
  - Avian influenza [Recovered/Resolved]
  - H1N1 influenza [Recovered/Resolved]
  - Respiratory syncytial virus infection [Recovered/Resolved]
  - Ear infection [Recovered/Resolved]
  - COVID-19 [Unknown]
  - Urticaria [Unknown]
  - Pruritus [Unknown]
  - Nasopharyngitis [Recovered/Resolved]
  - Upper respiratory tract infection [Unknown]
  - Rash [Unknown]
  - Drug effective for unapproved indication [Unknown]
  - Product use in unapproved indication [Unknown]

NARRATIVE: CASE EVENT DATE: 20220518
